FAERS Safety Report 8025229-5 (Version None)
Quarter: 2012Q1

REPORT INFORMATION
  Report Type: 
  Country: None (occurrence: None)
  Receive Date: 20120105
  Receipt Date: 20111227
  Transmission Date: 20120608
  Serious: Yes (Hospitalization)
  Sender: FDA-Public Use
  Company Number: TR-SANOFI-AVENTIS-2011SA085542

PATIENT
  Age: 38 Year

DRUGS (6)
  1. STREPTOMYCIN SULFATE [Suspect]
     Indication: BRUCELLOSIS
     Route: 065
  2. RIFAMPICIN [Suspect]
     Route: 065
  3. TETRACYCLINE [Concomitant]
     Indication: BRUCELLOSIS
  4. RIFAMPICIN [Suspect]
     Route: 065
  5. RIFAMPICIN [Suspect]
     Indication: BRUCELLOSIS
     Route: 065
  6. RIFAMPICIN [Suspect]
     Route: 065

REACTIONS (7)
  - HYPOKALAEMIA [None]
  - METABOLIC ALKALOSIS [None]
  - BLOOD PARATHYROID HORMONE INCREASED [None]
  - RENAL TUBULAR DISORDER [None]
  - VITAMIN D DECREASED [None]
  - HYPOCALCAEMIA [None]
  - HYPOMAGNESAEMIA [None]
